FAERS Safety Report 5855859-8 (Version None)
Quarter: 2008Q3

REPORT INFORMATION
  Report Type: 
  Country: None (occurrence: None)
  Receive Date: 20080825
  Receipt Date: 20080421
  Transmission Date: 20090109
  Serious: No
  Sender: FDA-Public Use
  Company Number: A0723882A

PATIENT
  Sex: Male

DRUGS (2)
  1. MALARONE [Suspect]
     Indication: MALARIA
     Dosage: 1MG PER DAY
     Route: 048
     Dates: start: 20070401
  2. NO CONCURRENT MEDICATION [Concomitant]

REACTIONS (1)
  - DRUG INEFFECTIVE [None]
